FAERS Safety Report 25728402 (Version 1)
Quarter: 2025Q3

REPORT INFORMATION
  Report Type: Report from Study
  Country: US (occurrence: US)
  Receive Date: 20250826
  Receipt Date: 20250826
  Transmission Date: 20251020
  Serious: Yes (Other)
  Sender: EISAI
  Company Number: US-Eisai-EC-2025-195564

PATIENT
  Age: 73 Year
  Sex: Male
  Weight: 118 kg

DRUGS (5)
  1. LECANEMAB [Suspect]
     Active Substance: LECANEMAB
     Indication: Dementia Alzheimer^s type
     Route: 042
     Dates: start: 20240520, end: 20240520
  2. ATORVASTATIN [Concomitant]
     Active Substance: ATORVASTATIN
     Indication: Dyslipidaemia
     Route: 048
     Dates: start: 2023
  3. LOSARTAIN-HYDROCHLOROTHIAZIDE [Concomitant]
     Indication: Hypertension
     Dosage: 20-12.5 MG
     Route: 048
     Dates: start: 2023
  4. VENLAFAXINE [Concomitant]
     Active Substance: VENLAFAXINE HYDROCHLORIDE
     Indication: Depression
     Route: 048
     Dates: start: 2023
  5. DONEPEZIL [Concomitant]
     Active Substance: DONEPEZIL
     Indication: Dementia Alzheimer^s type
     Route: 048
     Dates: start: 202406

REACTIONS (1)
  - Confusional state [Recovered/Resolved]

NARRATIVE: CASE EVENT DATE: 20240521
